FAERS Safety Report 16431757 (Version 1)
Quarter: 2019Q3

REPORT INFORMATION
  Report Type: Spontaneous
  Country: US (occurrence: US)
  Receive Date: 20190613
  Receipt Date: 20190613
  Transmission Date: 20191004
  Serious: Yes (Other)
  Sender: FDA-Public Use
  Company Number: None

PATIENT
  Age: 50 Year
  Sex: Male
  Weight: 74.25 kg

DRUGS (12)
  1. MS CONTIN [Suspect]
     Active Substance: MORPHINE SULFATE
     Indication: PROCEDURAL PAIN
  2. OXYCODONE AND ACETAMINOPHEN [Suspect]
     Active Substance: ACETAMINOPHEN\OXYCODONE HYDROCHLORIDE
     Route: 048
     Dates: start: 20190613, end: 20190613
  3. ABILIFY [Concomitant]
     Active Substance: ARIPIPRAZOLE
  4. XANAX [Concomitant]
     Active Substance: ALPRAZOLAM
  5. PROTONIX [Concomitant]
     Active Substance: PANTOPRAZOLE SODIUM
  6. SKELAXIN [Concomitant]
     Active Substance: METAXALONE
  7. LYRICA [Concomitant]
     Active Substance: PREGABALIN
  8. MULTI VITAMIN [Concomitant]
     Active Substance: VITAMINS
  9. BACLOFEN. [Concomitant]
     Active Substance: BACLOFEN
  10. UROXATRAL [Concomitant]
     Active Substance: ALFUZOSIN HYDROCHLORIDE
  11. MOVANTIC [Concomitant]
  12. NORVAC [Concomitant]
     Active Substance: AMLODIPINE BESYLATE

REACTIONS (5)
  - Spinal fusion surgery [None]
  - Vomiting [None]
  - Drug hypersensitivity [None]
  - Palpitations [None]
  - Blood pressure increased [None]

NARRATIVE: CASE EVENT DATE: 20190613
